FAERS Safety Report 7546838-3 (Version None)
Quarter: 2011Q2

REPORT INFORMATION
  Report Type: 
  Country: None (occurrence: None)
  Receive Date: 20110614
  Receipt Date: 20110531
  Transmission Date: 20111010
  Serious: Yes (Other)
  Sender: FDA-Public Use
  Company Number: DE-ROCHE-782186

PATIENT
  Sex: Female

DRUGS (2)
  1. HERCEPTIN [Suspect]
     Dosage: ADJUVANT THERAPY
     Route: 065
  2. HERCEPTIN [Suspect]
     Indication: BREAST CANCER
     Dosage: ADJUVANT THERAPY
     Route: 065

REACTIONS (2)
  - CARDIAC FAILURE [None]
  - BASEDOW'S DISEASE [None]
